FAERS Safety Report 9585973 (Version 5)
Quarter: 2014Q1

REPORT INFORMATION
  Report Type: Spontaneous
  Country: US (occurrence: US)
  Receive Date: 20131003
  Receipt Date: 20140130
  Transmission Date: 20141002
  Serious: Yes (Other)
  Sender: FDA-Public Use
  Company Number: US-PFIZER INC-2013281144

PATIENT
  Age: 93 Year
  Sex: Female

DRUGS (2)
  1. FLECTOR [Suspect]
     Indication: BACK PAIN
     Dosage: UNK
  2. FLECTOR [Suspect]
     Indication: SCIATICA

REACTIONS (2)
  - Cerebrovascular accident [Recovering/Resolving]
  - Drug ineffective [Unknown]
